FAERS Safety Report 17911288 (Version 1)
Quarter: 2020Q2

REPORT INFORMATION
  Report Type: Spontaneous
  Country: US (occurrence: US)
  Receive Date: 20200617
  Receipt Date: 20200617
  Transmission Date: 20200714
  Serious: Yes (Death)
  Sender: FDA-Public Use
  Company Number: None

PATIENT
  Sex: Male

DRUGS (1)
  1. XGEVA [Suspect]
     Active Substance: DENOSUMAB
     Indication: PROSTATE CANCER
     Dosage: ?          OTHER FREQUENCY:ONCE EVERY 4 WEEKS;?
     Route: 058
     Dates: start: 20170517, end: 20200617

REACTIONS (1)
  - Death [None]
